FAERS Safety Report 14250775 (Version 1)
Quarter: 2017Q4

REPORT INFORMATION
  Report Type: Spontaneous
  Country: US (occurrence: US)
  Receive Date: 20171205
  Receipt Date: 20171205
  Transmission Date: 20180321
  Serious: Yes (Other)
  Sender: FDA-Public Use
  Company Number: US-PFIZER INC-2017516923

PATIENT
  Sex: Female

DRUGS (2)
  1. IBRANCE [Suspect]
     Active Substance: PALBOCICLIB
     Indication: BREAST CANCER METASTATIC
     Dosage: 125 MG, CYCLIC (3 WEEKS ON/1 WEEK OFF )
  2. LETROZOLE. [Concomitant]
     Active Substance: LETROZOLE
     Dosage: UNK

REACTIONS (3)
  - Neutropenia [Recovered/Resolved]
  - Pneumonia [Recovered/Resolved]
  - Infection [Recovered/Resolved]
